FAERS Safety Report 5626462-X (Version None)
Quarter: 2008Q1

REPORT INFORMATION
  Report Type: 
  Country: None (occurrence: None)
  Receive Date: 20080214
  Receipt Date: 20080201
  Transmission Date: 20080703
  Serious: Yes (Death, Hospitalization, Other)
  Sender: FDA-Public Use
  Company Number: US-ELI_LILLY_AND_COMPANY-US200801005929

PATIENT
  Age: 94 Year
  Sex: Female
  Weight: 45.351 kg

DRUGS (12)
  1. FORTEO [Suspect]
     Indication: OSTEOPOROSIS
     Dosage: UNK, UNK
     Dates: start: 20070401
  2. CALCIUM W/VITAMIN D NOS [Concomitant]
     Dosage: 2400 MG, UNK
  3. PROTONIX [Concomitant]
     Indication: ULCER
  4. VITAMIN B COMPLEX CAP [Concomitant]
  5. GLUCOSAMINE [Concomitant]
     Indication: ARTHRITIS
     Dosage: 1000 MG, UNK
  6. MULTIVITAMINS AND IRON [Concomitant]
     Dosage: 1 D/F, DAILY (1/D)
  7. BENICAR [Concomitant]
     Indication: BLOOD PRESSURE
     Dosage: 20 MG, UNK
  8. LASIX [Concomitant]
     Indication: FLUID RETENTION
     Dosage: 20 MG, DAILY (1/D)
  9. RITALIN [Concomitant]
     Dosage: 5 MG, 3/D
  10. CELEXA [Concomitant]
     Dosage: 20 MG, DAILY (1/D)
  11. SEROQUEL [Concomitant]
     Dosage: 25 MG, EACH EVENING
  12. SYNTHROID [Concomitant]
     Dosage: 50 UG, UNK

REACTIONS (7)
  - BALANCE DISORDER [None]
  - DEHYDRATION [None]
  - DYSPHAGIA [None]
  - FALL [None]
  - HIP FRACTURE [None]
  - ORGAN FAILURE [None]
  - RENAL FAILURE [None]
